FAERS Safety Report 5877676-5 (Version None)
Quarter: 2008Q3

REPORT INFORMATION
  Report Type: 
  Country: None (occurrence: None)
  Receive Date: 20080911
  Receipt Date: 20080426
  Transmission Date: 20090109
  Serious: No
  Sender: FDA-Public Use
  Company Number: US-BAYER-200821266NA

PATIENT
  Sex: Male

DRUGS (1)
  1. AVELOX [Suspect]
     Indication: DRUG USE FOR UNKNOWN INDICATION
     Route: 048
     Dates: start: 20080426

REACTIONS (1)
  - SWOLLEN TONGUE [None]
